FAERS Safety Report 23485950 (Version 1)
Quarter: 2024Q1

REPORT INFORMATION
  Report Type: Spontaneous
  Country: GB (occurrence: GB)
  Receive Date: 20240206
  Receipt Date: 20240206
  Transmission Date: 20240410
  Serious: No
  Sender: FDA-Public Use
  Company Number: None

PATIENT
  Age: 72 Year
  Sex: Male
  Weight: 114 kg

DRUGS (15)
  1. EZETIMIBE [Suspect]
     Active Substance: EZETIMIBE
     Indication: Product used for unknown indication
     Dosage: UNK, QD (TAKE ONE DAILY)
     Route: 065
     Dates: start: 20230502, end: 20230704
  2. ALLOPURINOL [Concomitant]
     Active Substance: ALLOPURINOL
     Indication: Product used for unknown indication
     Dosage: UNK, QD (TAKE ONE DAILY)
     Route: 065
     Dates: start: 20220812
  3. ASPIRIN [Concomitant]
     Active Substance: ASPIRIN
     Indication: Product used for unknown indication
     Dosage: UNK, QD (TAKE ONE DAILY)
     Route: 065
     Dates: start: 20230516
  4. CETIRIZINE [Concomitant]
     Active Substance: CETIRIZINE HYDROCHLORIDE
     Indication: Product used for unknown indication
     Dosage: UNK, QD (TAKE ONE DAILY)
     Route: 065
     Dates: start: 20180208
  5. DOXAZOSIN [Concomitant]
     Active Substance: DOXAZOSIN MESYLATE
     Indication: Product used for unknown indication
     Dosage: 1 DOSAGE FORM, BID (1 TABLET BD)
     Route: 065
     Dates: start: 20210209
  6. FEXOFENADINE [Concomitant]
     Active Substance: FEXOFENADINE HYDROCHLORIDE
     Indication: Product used for unknown indication
     Dosage: UNK (USE AS DIRECTED BY DERMATOLOGY)
     Route: 065
     Dates: start: 20200520
  7. FOLIC ACID [Concomitant]
     Active Substance: FOLIC ACID
     Indication: Product used for unknown indication
     Dosage: UNK, QD (TAKE ONE DAILY)
     Route: 065
     Dates: start: 20230502, end: 20230627
  8. FUROSEMIDE [Concomitant]
     Active Substance: FUROSEMIDE
     Indication: Product used for unknown indication
     Dosage: UNK, QD (TAKE TWO EACH MORNING)
     Route: 065
     Dates: start: 20230612
  9. LISINOPRIL [Concomitant]
     Active Substance: LISINOPRIL
     Indication: Ill-defined disorder
     Dosage: UNK, QD (TAKE ONE DAILY)
     Route: 065
     Dates: start: 20180906
  10. MENTHOL [Concomitant]
     Active Substance: MENTHOL
     Indication: Product used for unknown indication
     Dosage: UNK, PRN (APPLY AS NEEDED)
     Route: 065
     Dates: start: 20230411, end: 20230416
  11. MONTELUKAST [Concomitant]
     Active Substance: MONTELUKAST SODIUM
     Indication: Product used for unknown indication
     Dosage: UNK, HS (TAKE ONE AT NIGHT)
     Route: 065
     Dates: start: 20210209
  12. OMEPRAZOLE [Concomitant]
     Active Substance: OMEPRAZOLE
     Indication: Product used for unknown indication
     Dosage: UNK, PRN (ONE TO BE TAKEN EACH DAY PRN)
     Route: 065
     Dates: start: 20180816
  13. ROSUVASTATIN [Concomitant]
     Active Substance: ROSUVASTATIN
     Indication: Product used for unknown indication
     Dosage: UNK, QD  (TAKE ONE DAILY)
     Route: 065
     Dates: start: 20230614
  14. Salamol (Salbutamol Sulphate, Salbutamol Sulfate, Salbutamol) [Concomitant]
     Indication: Product used for unknown indication
     Dosage: UNK, PRN (INHALE 2 DOSES AS NEEDED )
     Dates: start: 20211115
  15. Trelegy (Umeclidinium Bromide, Fluticasone Furoate, Vilanterol Trifena [Concomitant]
     Indication: Product used for unknown indication
     Dosage: 1 DOSAGE FORM, QD
     Dates: start: 20230413

REACTIONS (2)
  - Pruritus [Unknown]
  - Rash erythematous [Unknown]
